FAERS Safety Report 9644239 (Version 2)
Quarter: 2013Q4

REPORT INFORMATION
  Report Type: Report from Study
  Country: FR (occurrence: FR)
  Receive Date: 20131024
  Receipt Date: 20131209
  Transmission Date: 20140711
  Serious: Yes (Death, Hospitalization, Disabling, Other)
  Sender: FDA-Public Use
  Company Number: FR-ROCHE-1294000

PATIENT
  Age: 64 Year
  Sex: Female
  Weight: 70 kg

DRUGS (5)
  1. ZELBORAF [Suspect]
     Indication: MALIGNANT MELANOMA
     Dosage: 240 MG
     Route: 048
     Dates: start: 20130211, end: 201305
  2. DEROXAT [Concomitant]
  3. NOCTAMIDE [Concomitant]
  4. DUROGESIC [Concomitant]
  5. SEVREDOL [Concomitant]

REACTIONS (8)
  - Disease progression [Fatal]
  - Arthralgia [Fatal]
  - Vomiting [Fatal]
  - Gastrointestinal motility disorder [Fatal]
  - Erythema [Recovered/Resolved with Sequelae]
  - Neoplasm skin [Recovered/Resolved with Sequelae]
  - Alopecia [Unknown]
  - Cystitis [Unknown]
